FAERS Safety Report 20637432 (Version 1)
Quarter: 2022Q1

REPORT INFORMATION
  Report Type: Spontaneous
  Country: DE (occurrence: DE)
  Receive Date: 20220325
  Receipt Date: 20220325
  Transmission Date: 20220423
  Serious: Yes (Death)
  Sender: FDA-Public Use
  Company Number: DE-BAYER-2022A020827

PATIENT
  Age: 63 Year
  Sex: Male

DRUGS (9)
  1. MYCOPHENOLATE SODIUM [Suspect]
     Active Substance: MYCOPHENOLATE SODIUM
     Indication: Product used for unknown indication
     Dosage: 1440 MILLIGRAM, QD, (UNK,1440 MG-DAY)
  2. PREDNISOLONE [Suspect]
     Active Substance: PREDNISOLONE
     Indication: Immunosuppressant drug therapy
     Dosage: 15 MILLIGRAM, QD (15 MG, QD)
  3. PREDNISOLONE [Suspect]
     Active Substance: PREDNISOLONE
     Indication: Renal transplant
  4. TACROLIMUS [Suspect]
     Active Substance: TACROLIMUS
     Indication: Product used for unknown indication
     Dosage: 3 MILLIGRAM, QD (UNK,3 MG-DAY)
  5. SULFAMETHOXAZOLE\TRIMETHOPRIM [Concomitant]
     Active Substance: SULFAMETHOXAZOLE\TRIMETHOPRIM
     Dosage: UNK UNK, 3XW (THREE TIMES A WEEK AND)
  6. VALGANCICLOVIR [Concomitant]
     Active Substance: VALGANCICLOVIR
     Dosage: UNK
  7. PREDNISONE [Concomitant]
     Active Substance: PREDNISONE
     Dosage: 10 MILLIGRAM, QD (UNK,10 MG-DAY)
  8. METHYLPREDNISOLONE [Concomitant]
     Active Substance: METHYLPREDNISOLONE
     Dosage: UNK
  9. THYMOGLOBULIN [Concomitant]
     Active Substance: LAPINE T-LYMPHOCYTE IMMUNE GLOBULIN
     Dosage: 500 MILLIGRAM, QD (UNK, 500 MG-DAY)

REACTIONS (6)
  - Gastroenteritis Escherichia coli [Fatal]
  - Multiple organ dysfunction syndrome [Fatal]
  - Thrombotic microangiopathy [Fatal]
  - Cerebral infarction [Fatal]
  - Haemolytic uraemic syndrome [Fatal]
  - Off label use [Unknown]
